FAERS Safety Report 6047693-3 (Version None)
Quarter: 2009Q1

REPORT INFORMATION
  Report Type: 
  Country: None (occurrence: None)
  Receive Date: 20090123
  Receipt Date: 20090119
  Transmission Date: 20090719
  Serious: Yes (Hospitalization)
  Sender: FDA-Public Use
  Company Number: BE-JNJFOC-20090104503

PATIENT
  Sex: Male

DRUGS (3)
  1. HALDOL DECANOAS [Suspect]
     Route: 030
  2. HALDOL DECANOAS [Suspect]
     Indication: DRUG USE FOR UNKNOWN INDICATION
     Route: 030
  3. TRAZOLAN [Suspect]
     Indication: DRUG USE FOR UNKNOWN INDICATION
     Dosage: HALF

REACTIONS (1)
  - PANCREATITIS [None]
